FAERS Safety Report 25923808 (Version 2)
Quarter: 2025Q4

REPORT INFORMATION
  Report Type: Spontaneous
  Country: BR (occurrence: BR)
  Receive Date: 20251015
  Receipt Date: 20251205
  Transmission Date: 20260118
  Serious: No
  Sender: GILEAD
  Company Number: BR-GSK-BR2025AMR126155

PATIENT
  Sex: Female

DRUGS (1)
  1. AMBRISENTAN [Suspect]
     Active Substance: AMBRISENTAN
     Indication: Pulmonary hypertension
     Dosage: 10 MG
     Route: 065

REACTIONS (12)
  - Neck pain [Unknown]
  - Ear pain [Unknown]
  - Oropharyngeal pain [Unknown]
  - Flushing [Unknown]
  - Generalised oedema [Unknown]
  - Eye haemangioma [Not Recovered/Not Resolved]
  - Malaise [Unknown]
  - Eye irritation [Unknown]
  - Vision blurred [Unknown]
  - Ear pruritus [Unknown]
  - Oral neoplasm [Unknown]
  - Hypersensitivity [Unknown]
